FAERS Safety Report 4369432-4 (Version None)
Quarter: 2004Q2

REPORT INFORMATION
  Report Type: 
  Country: None (occurrence: None)
  Receive Date: 20040527
  Receipt Date: 20040517
  Transmission Date: 20050107
  Serious: Yes (Hospitalization, Other)
  Sender: FDA-Public Use
  Company Number: HQWYE973218MAY04

PATIENT
  Age: 41 Year
  Sex: Female

DRUGS (5)
  1. EFFEXOR XR [Suspect]
     Indication: ANXIETY
     Dosage: 150 MG X 2, TWICE DAILY (OVERDOSE AMOUNT), ORAL
     Route: 048
     Dates: start: 20030101, end: 20040501
  2. EFFEXOR XR [Suspect]
     Indication: DEPRESSION
     Dosage: 150 MG X 2, TWICE DAILY (OVERDOSE AMOUNT), ORAL
     Route: 048
     Dates: start: 20030101, end: 20040501
  3. UNSPECIFIED ANTIHYPERTENSIVE AGENT (UNSPECIFIED ANTIHYPERTENSIVE AGENT [Concomitant]
  4. UNSPECIFIED ANTIANXIETY AGENT [Concomitant]
  5. UNSPECIFIED ANTIDEPRESSANT [Concomitant]

REACTIONS (6)
  - ACCIDENTAL OVERDOSE [None]
  - ASTHENIA [None]
  - DEPRESSION [None]
  - HYPERTENSION [None]
  - MEDICATION ERROR [None]
  - PANCREATITIS [None]
